FAERS Safety Report 7621053-3 (Version None)
Quarter: 2011Q3

REPORT INFORMATION
  Report Type: 
  Country: None (occurrence: None)
  Receive Date: 20110719
  Receipt Date: 20100901
  Transmission Date: 20111222
  Serious: No
  Sender: FDA-Public Use
  Company Number: US-KINGPHARMUSA00001-K201001100

PATIENT
  Sex: Female

DRUGS (2)
  1. LEVOXYL [Suspect]
     Dosage: 50 MCG, UNK
     Route: 048
     Dates: start: 20100701
  2. LEVOXYL [Suspect]
     Dosage: 100 MCG, UNK
     Route: 048
     Dates: end: 20100701

REACTIONS (2)
  - FLUSHING [None]
  - ERYTHEMA [None]
